FAERS Safety Report 20030350 (Version 1)
Quarter: 2021Q4

REPORT INFORMATION
  Report Type: Spontaneous
  Country: CN (occurrence: CN)
  Receive Date: 20211103
  Receipt Date: 20211103
  Transmission Date: 20220303
  Serious: Yes (Hospitalization)
  Sender: FDA-Public Use
  Company Number: CN-ELI_LILLY_AND_COMPANY-CN202111000111

PATIENT
  Age: 67 Year
  Sex: Female

DRUGS (3)
  1. INSULIN LISPRO [Suspect]
     Active Substance: INSULIN LISPRO
     Indication: Blood glucose increased
     Dosage: 30 U, DAILY
     Route: 058
     Dates: start: 20210910, end: 20211010
  2. INSULIN LISPRO [Suspect]
     Active Substance: INSULIN LISPRO
     Indication: Type 2 diabetes mellitus
  3. INSULIN DEGLUDEC [Suspect]
     Active Substance: INSULIN DEGLUDEC
     Indication: Blood glucose increased
     Dosage: 12 U, BID, BEFORE BREAKFAST AND DINNER
     Route: 058
     Dates: start: 20211010, end: 20211012

REACTIONS (7)
  - Diabetes mellitus inadequate control [Recovering/Resolving]
  - Injection site injury [Unknown]
  - Injection site pruritus [Recovering/Resolving]
  - Injection site erythema [Unknown]
  - Injection site induration [Unknown]
  - Injection site mass [Recovering/Resolving]
  - Drug hypersensitivity [Unknown]

NARRATIVE: CASE EVENT DATE: 20211010
